FAERS Safety Report 24010753 (Version 3)
Quarter: 2024Q3

REPORT INFORMATION
  Report Type: Report from Study
  Country: US (occurrence: US)
  Receive Date: 20240625
  Receipt Date: 20240702
  Transmission Date: 20241017
  Serious: Yes (Other)
  Sender: PFIZER
  Company Number: US-PFIZER INC-202400199076

PATIENT
  Age: 80 Year
  Sex: Male
  Weight: 138.35 kg

DRUGS (1)
  1. TUKYSA [Suspect]
     Active Substance: TUCATINIB
     Indication: Bone cancer
     Dosage: EVERY 12 HOURS, PUT IN MOUTH AND SWALLOW WITH WATER
     Route: 048
     Dates: start: 20240603, end: 20240619

REACTIONS (7)
  - Rash [Recovering/Resolving]
  - Pain in extremity [Recovering/Resolving]
  - Skin exfoliation [Recovering/Resolving]
  - Joint swelling [Recovering/Resolving]
  - Urinary tract infection [Not Recovered/Not Resolved]
  - Faeces discoloured [Recovered/Resolved]
  - Off label use [Unknown]

NARRATIVE: CASE EVENT DATE: 20240601
